FAERS Safety Report 7806638-3 (Version None)
Quarter: 2011Q4

REPORT INFORMATION
  Report Type: 
  Country: None (occurrence: None)
  Receive Date: 20111011
  Receipt Date: 20111001
  Transmission Date: 20120403
  Serious: No
  Sender: FDA-Public Use
  Company Number: US-JNJFOC-20111001137

PATIENT
  Age: 33 Year
  Sex: Male
  Weight: 68.04 kg

DRUGS (1)
  1. INVEGA [Suspect]
     Indication: BIPOLAR DISORDER
     Dosage: 6MG/HALF TABLET TWICE DAILY
     Route: 048
     Dates: start: 20110928

REACTIONS (2)
  - DRUG PRESCRIBING ERROR [None]
  - WRONG TECHNIQUE IN DRUG USAGE PROCESS [None]
